FAERS Safety Report 21235493 (Version 4)
Quarter: 2022Q4

REPORT INFORMATION
  Report Type: Spontaneous
  Country: US (occurrence: US)
  Receive Date: 20220821
  Receipt Date: 20221111
  Transmission Date: 20230113
  Serious: No
  Sender: FDA-Public Use
  Company Number: US-BRISTOL-MYERS SQUIBB COMPANY-2022-092212

PATIENT
  Age: 79 Year
  Sex: Male

DRUGS (3)
  1. REVLIMID [Suspect]
     Active Substance: LENALIDOMIDE
     Indication: Plasma cell myeloma
     Dosage: FREQ: DAILY ON DAYS 1-21 OF EACH 28 DAY CYCLE
     Route: 048
     Dates: start: 20210921
  2. REVLIMID [Suspect]
     Active Substance: LENALIDOMIDE
     Dosage: 1 CAPSULE, 14 DAY CYCLE REPEAT CYCLE EVERY 21 DAYS
     Route: 048
     Dates: start: 20210916
  3. REVLIMID [Suspect]
     Active Substance: LENALIDOMIDE
     Dosage: FREQ- TAKE 1 CAPSULE BY MOUTH DAILY ON DAYS 1-21 OF EACH 28-DAY CYCLE. TAKE WHOLE WITH WATER, AT THE
     Route: 048
     Dates: start: 20210921

REACTIONS (4)
  - Pruritus [Recovered/Resolved]
  - Fatigue [Not Recovered/Not Resolved]
  - Tooth infection [Recovered/Resolved]
  - Off label use [Unknown]
